FAERS Safety Report 25401176 (Version 5)
Quarter: 2025Q3

REPORT INFORMATION
  Report Type: Spontaneous
  Country: CA (occurrence: CA)
  Receive Date: 20250605
  Receipt Date: 20250902
  Transmission Date: 20251021
  Serious: Yes (Other)
  Sender: PFIZER
  Company Number: CA-PFIZER INC-202500094363

PATIENT
  Age: 45 Year
  Sex: Female

DRUGS (2)
  1. ABRILADA [Suspect]
     Active Substance: ADALIMUMAB-AFZB
     Indication: Hidradenitis
     Route: 058
     Dates: start: 20250501, end: 2025
  2. DOXYCYCLINE [Concomitant]
     Active Substance: DOXYCYCLINE

REACTIONS (9)
  - Haemorrhoidal haemorrhage [Unknown]
  - Therapeutic product effect incomplete [Unknown]
  - Abdominal discomfort [Unknown]
  - Dyspepsia [Unknown]
  - Headache [Unknown]
  - Fatigue [Recovering/Resolving]
  - Nodule [Unknown]
  - Groin pain [Unknown]
  - Wound [Unknown]

NARRATIVE: CASE EVENT DATE: 20250101
